FAERS Safety Report 21705368 (Version 1)
Quarter: 2022Q4

REPORT INFORMATION
  Report Type: Spontaneous
  Country: FR (occurrence: FR)
  Receive Date: 20221209
  Receipt Date: 20221209
  Transmission Date: 20230113
  Serious: Yes (Other)
  Sender: FDA-Public Use
  Company Number: None

PATIENT
  Age: 57 Year
  Sex: Female
  Weight: 76 kg

DRUGS (14)
  1. FLUOROURACIL [Suspect]
     Active Substance: FLUOROURACIL
     Indication: Rectal adenocarcinoma
     Dosage: ADJUSTMENT DOSE 30% INFUSER OVER 48H
     Dates: start: 20221025, end: 20221027
  2. IRINOTECAN [Suspect]
     Active Substance: IRINOTECAN
     Indication: Rectal adenocarcinoma
     Dates: start: 20220921, end: 20220921
  3. OXALIPLATIN [Suspect]
     Active Substance: OXALIPLATIN
     Indication: Rectal adenocarcinoma
     Dates: start: 20221005, end: 20221005
  4. FILGRASTIM [Suspect]
     Active Substance: FILGRASTIM
     Indication: Rectal adenocarcinoma
     Dosage: 30 MU/0.5 ML, IN PRE-FILLED SYRINGE
     Dates: start: 20220924, end: 20220927
  5. DOLIPRANE [Concomitant]
     Active Substance: ACETAMINOPHEN
     Indication: Pain
     Dosage: STRENGTH: 1000 MG, 1 G EVERY 6H IF PAIN
  6. LEVOLEUCOVORIN CALCIUM [Concomitant]
     Active Substance: LEVOLEUCOVORIN CALCIUM
     Indication: Rectal adenocarcinoma
     Dates: start: 20220921, end: 20220921
  7. OXALIPLATIN [Suspect]
     Active Substance: OXALIPLATIN
     Indication: Rectal adenocarcinoma
     Dates: start: 20220921, end: 20220921
  8. LEVOLEUCOVORIN CALCIUM [Concomitant]
     Active Substance: LEVOLEUCOVORIN CALCIUM
     Indication: Rectal adenocarcinoma
     Dates: start: 20221025, end: 20221025
  9. LEVOLEUCOVORIN CALCIUM [Concomitant]
     Active Substance: LEVOLEUCOVORIN CALCIUM
     Indication: Rectal adenocarcinoma
     Dates: start: 20221005, end: 20221005
  10. FILGRASTIM [Suspect]
     Active Substance: FILGRASTIM
     Indication: Rectal adenocarcinoma
     Dosage: 30 MU/0.5 ML, IN PRE-FILLED SYRINGE
     Dates: start: 20221006, end: 20221008
  11. FLUOROURACIL [Suspect]
     Active Substance: FLUOROURACIL
     Indication: Rectal adenocarcinoma
     Dosage: ADJUSTMENT DOSE 30% INFUSER OVER 48H
     Dates: start: 20221005, end: 20221007
  12. FLUOROURACIL [Suspect]
     Active Substance: FLUOROURACIL
     Indication: Rectal adenocarcinoma
     Dosage: ADJUSTMENT DOSE 30% INFUSER OVER 48H
     Dates: start: 20220921, end: 20220923
  13. IRINOTECAN [Suspect]
     Active Substance: IRINOTECAN
     Indication: Rectal adenocarcinoma
     Dates: start: 20221025, end: 20221025
  14. IRINOTECAN [Suspect]
     Active Substance: IRINOTECAN
     Indication: Rectal adenocarcinoma
     Dates: start: 20221005, end: 20221005

REACTIONS (1)
  - Hepatic cytolysis [Recovering/Resolving]

NARRATIVE: CASE EVENT DATE: 20221004
